FAERS Safety Report 8416907 (Version 2)
Quarter: 2013Q2

REPORT INFORMATION
  Report Type: Report from Study
  Country: DE (occurrence: DE)
  Receive Date: 20120220
  Receipt Date: 20130503
  Transmission Date: 20140414
  Serious: Yes (Hospitalization, Other)
  Sender: FDA-Public Use
  Company Number: DE-ABBOTT-12P-062-0903499-00

PATIENT
  Age: 61 Year
  Sex: Male
  Weight: 137 kg

DRUGS (4)
  1. HUMIRA 40 MG/ 0.8 ML PRE-FILLED SYRINGE [Suspect]
     Indication: RHEUMATOID ARTHRITIS
     Route: 058
     Dates: start: 20100421, end: 20120104
  2. PREDNISOLON [Concomitant]
     Indication: PRODUCT USED FOR UNKNOWN INDICATION
     Route: 048
     Dates: start: 200301
  3. BENZBROMARON [Concomitant]
     Indication: GOUT
     Dates: start: 200906
  4. NEBIVOLOL [Concomitant]
     Indication: HYPERTENSION
     Dates: start: 20100421

REACTIONS (8)
  - Dizziness [Unknown]
  - Gastritis [Recovering/Resolving]
  - Epigastric discomfort [Unknown]
  - Cholelithiasis [Unknown]
  - Abdominal pain [Recovering/Resolving]
  - Gastric disorder [Unknown]
  - Abdominal pain upper [Unknown]
  - Vomiting [Unknown]
